FAERS Safety Report 4774212-1 (Version None)
Quarter: 2005Q3

REPORT INFORMATION
  Report Type: 
  Country: None (occurrence: None)
  Receive Date: 20050914
  Receipt Date: 20050401
  Transmission Date: 20060218
  Serious: Yes (Other)
  Sender: FDA-Public Use
  Company Number: 163-20785-05040196

PATIENT
  Sex: Female

DRUGS (1)
  1. THALOMID [Suspect]
     Indication: UTERINE LEIOMYOSARCOMA
     Dosage: 200MG, INCREASED BY 200MG INCREMENTS TO A MAX. DOSE OF 1000MG/DAY, QHS, ORAL
     Route: 048
     Dates: start: 20011218

REACTIONS (1)
  - DEPRESSED LEVEL OF CONSCIOUSNESS [None]
